FAERS Safety Report 9029869 (Version 2)
Quarter: 2013Q1

REPORT INFORMATION
  Report Type: Spontaneous
  Country: IS (occurrence: IS)
  Receive Date: 20130124
  Receipt Date: 20130220
  Transmission Date: 20140127
  Serious: Yes (Life-Threatening, Hospitalization)
  Sender: FDA-Public Use
  Company Number: IS-TEVA-381619ISR

PATIENT
  Sex: Male
  Weight: 77 kg

DRUGS (4)
  1. MODIODAL [Suspect]
     Indication: FATIGUE
     Dosage: 1-1X2
  2. TYSABRI [Concomitant]
     Dosage: HAS RECEIVED 35 INFUSIONS SO FAR.
     Dates: start: 20100210
  3. ESOMEPRAZOLE [Concomitant]
     Indication: GASTROOESOPHAGEAL REFLUX DISEASE
  4. RANOMAX [Concomitant]
     Indication: BENIGN PROSTATIC HYPERPLASIA

REACTIONS (2)
  - Ventricular tachycardia [Not Recovered/Not Resolved]
  - Fatigue [Unknown]
